FAERS Safety Report 9580178 (Version 1)
Quarter: 2013Q3

REPORT INFORMATION
  Report Type: Spontaneous
  Country: US (occurrence: None)
  Receive Date: 20130916
  Receipt Date: 20130916
  Transmission Date: 20140515
  Serious: Yes (Other)
  Sender: FDA-Public Use
  Company Number: JPI-P-030345

PATIENT
  Age: 35 Year
  Sex: Male
  Weight: 136.08 kg

DRUGS (4)
  1. XYREM [Suspect]
     Indication: NARCOLEPSY
     Dosage: 4.5 GM (2.25 GM, 2 IN 1 D), ORAL
     Route: 048
     Dates: start: 20130225, end: 20130308
  2. XYREM [Suspect]
     Indication: SOMNOLENCE
     Dosage: 4.5 GM (2.25 GM, 2 IN 1 D), ORAL
     Route: 048
     Dates: start: 20130225, end: 20130308
  3. FISH OIL [Concomitant]
  4. ARMODAFINIL [Concomitant]

REACTIONS (5)
  - Sleep apnoea syndrome [None]
  - Insomnia [None]
  - Unevaluable event [None]
  - Nausea [None]
  - Vomiting [None]
